FAERS Safety Report 24923961 (Version 1)
Quarter: 2025Q1

REPORT INFORMATION
  Report Type: Report from Study
  Country: TW (occurrence: TW)
  Receive Date: 20250204
  Receipt Date: 20250204
  Transmission Date: 20250409
  Serious: Yes (Hospitalization)
  Sender: ABBVIE
  Company Number: TW-ABBVIE-6117444

PATIENT
  Age: 73 Year
  Sex: Female
  Weight: 45 kg

DRUGS (4)
  1. HUMIRA [Suspect]
     Active Substance: ADALIMUMAB
     Indication: Ankylosing spondylitis
     Route: 058
     Dates: start: 20210525, end: 202501
  2. ARHEUMA [Concomitant]
     Indication: Ankylosing spondylitis
     Route: 048
     Dates: start: 20201019
  3. METHOTREXATE [Concomitant]
     Active Substance: METHOTREXATE
     Indication: Ankylosing spondylitis
     Route: 048
     Dates: start: 20201019
  4. PREDNISOLONE [Concomitant]
     Active Substance: PREDNISOLONE
     Indication: Ankylosing spondylitis
     Route: 048
     Dates: start: 20211207

REACTIONS (3)
  - Traumatic intracranial haemorrhage [Not Recovered/Not Resolved]
  - Road traffic accident [Not Recovered/Not Resolved]
  - Coma [Not Recovered/Not Resolved]

NARRATIVE: CASE EVENT DATE: 20250101
